FAERS Safety Report 10489943 (Version 2)
Quarter: 2014Q4

REPORT INFORMATION
  Report Type: Spontaneous
  Country: US (occurrence: US)
  Receive Date: 20141002
  Receipt Date: 20141003
  Transmission Date: 20150528
  Serious: No
  Sender: FDA-Public Use
  Company Number: US-BAYER-2014-145400

PATIENT
  Age: 58 Year
  Sex: Female
  Weight: 74.83 kg

DRUGS (8)
  1. PROGESTERONE. [Concomitant]
     Active Substance: PROGESTERONE
     Indication: HORMONE LEVEL ABNORMAL
     Dosage: 100 MG, QD
     Route: 048
     Dates: start: 20120824
  2. OMEPRAZOLE. [Concomitant]
     Active Substance: OMEPRAZOLE
     Indication: GASTROOESOPHAGEAL REFLUX DISEASE
     Dosage: 20 MG, QD
     Route: 048
     Dates: start: 20110825
  3. BACITRACIN. [Concomitant]
     Active Substance: BACITRACIN
     Indication: CONJUNCTIVITIS
     Dosage: 500 U/G, QD
     Route: 047
     Dates: start: 20140905, end: 20140912
  4. SUMATRIPTAN. [Concomitant]
     Active Substance: SUMATRIPTAN
     Indication: MIGRAINE
     Dosage: 25 MG, TWICE A DAY AS NEEDED
     Route: 048
     Dates: start: 20140709
  5. ESTRADIOL HEMIHYDRATE (PATCH) [Suspect]
     Active Substance: ESTRADIOL HEMIHYDRATE
     Indication: HOT FLUSH
     Dosage: 1 DF, OW
     Route: 062
     Dates: start: 20140811
  6. LISINOPRIL. [Concomitant]
     Active Substance: LISINOPRIL
     Indication: BLOOD PRESSURE ABNORMAL
     Dosage: 10 MG, QD
     Route: 048
     Dates: start: 20140709
  7. DOXYCYCLINE. [Concomitant]
     Active Substance: DOXYCYCLINE
     Dosage: 100 MG, BID
     Route: 048
     Dates: start: 20131211
  8. CYCLOBENZAPRINE [Concomitant]
     Active Substance: CYCLOBENZAPRINE
     Indication: MUSCLE SPASMS
     Dosage: 5 MG, HS
     Route: 048
     Dates: start: 20140620

REACTIONS (4)
  - Application site pruritus [Recovered/Resolved]
  - Application site rash [Recovering/Resolving]
  - Product adhesion issue [Recovered/Resolved]
  - Application site erythema [Recovered/Resolved]

NARRATIVE: CASE EVENT DATE: 20140922
